FAERS Safety Report 8249344-6 (Version None)
Quarter: 2012Q2

REPORT INFORMATION
  Report Type: 
  Country: None (occurrence: None)
  Receive Date: 20120402
  Receipt Date: 20120321
  Transmission Date: 20120825
  Serious: Yes (Hospitalization)
  Sender: FDA-Public Use
  Company Number: FR-JNJFOC-20120311450

PATIENT
  Age: 82 Year
  Sex: Male

DRUGS (7)
  1. POTASSIUM CHLORIDE [Concomitant]
     Route: 065
  2. CORDARONE [Concomitant]
     Route: 065
  3. TAMSULOSIN HCL [Concomitant]
     Route: 065
  4. ESCITALOPRAM OXALATE [Concomitant]
     Route: 065
  5. REMICADE [Suspect]
     Indication: CROHN'S DISEASE
     Route: 042
     Dates: start: 20110715, end: 20111221
  6. PANTOPRAZOLE [Concomitant]
     Route: 065
  7. ATACAND [Concomitant]
     Route: 065

REACTIONS (2)
  - IMPETIGO HERPETIFORMIS [None]
  - HERPES ZOSTER [None]
